FAERS Safety Report 4987520-6 (Version None)
Quarter: 2006Q2

REPORT INFORMATION
  Report Type: 
  Country: None (occurrence: None)
  Receive Date: 20060424
  Receipt Date: 20060413
  Transmission Date: 20061013
  Serious: Yes (Other)
  Sender: FDA-Public Use
  Company Number: 2005AP000813

PATIENT
  Age: 56 Year
  Sex: Female

DRUGS (14)
  1. PAROXETINE HCL [Suspect]
     Indication: ANXIETY
     Dosage: SEE IMAGE
     Route: 048
     Dates: start: 20040901
  2. PAROXETINE HCL [Suspect]
     Indication: DEPRESSION
     Dosage: SEE IMAGE
     Route: 048
     Dates: start: 20040901
  3. PAROXETINE HCL [Suspect]
     Indication: ANXIETY
     Dosage: SEE IMAGE
     Route: 048
     Dates: start: 20050801
  4. PAROXETINE HCL [Suspect]
     Indication: DEPRESSION
     Dosage: SEE IMAGE
     Route: 048
     Dates: start: 20050801
  5. PAROXETINE HCL [Suspect]
     Indication: ANXIETY
     Dosage: SEE IMAGE
     Route: 048
     Dates: start: 20060101
  6. PAROXETINE HCL [Suspect]
     Indication: DEPRESSION
     Dosage: SEE IMAGE
     Route: 048
     Dates: start: 20060101
  7. LORAZEPAM [Concomitant]
  8. TRAZODONE HCL [Concomitant]
  9. BUPROPION [Concomitant]
  10. HYDROCHLOROTHIAZIDE [Concomitant]
  11. METFORMIN [Concomitant]
  12. LIPITOR [Concomitant]
  13. TRAMADOL HCL [Concomitant]
  14. ZOLOFT [Concomitant]

REACTIONS (8)
  - DIZZINESS [None]
  - FALL [None]
  - FEAR [None]
  - FRACTURED COCCYX [None]
  - HALLUCINATION, AUDITORY [None]
  - HALLUCINATION, TACTILE [None]
  - HALLUCINATION, VISUAL [None]
  - PAIN [None]
